FAERS Safety Report 23022358 (Version 3)
Quarter: 2023Q4

REPORT INFORMATION
  Report Type: Spontaneous
  Country: JP (occurrence: None)
  Receive Date: 20231003
  Receipt Date: 20231222
  Transmission Date: 20240110
  Serious: Yes (Death)
  Sender: FDA-Public Use
  Company Number: 2023A222394

PATIENT
  Age: 912 Month
  Sex: Male
  Weight: 60 kg

DRUGS (7)
  1. ONDEXXYA [Suspect]
     Active Substance: ANDEXANET ALFA
     Indication: Cerebral haemorrhage
     Dosage: METHOD A: 400 MG IV AT A RATE OF 30 MG/MIN, FOLLOWED BY 480 MG IV AT A RATE OF 4 MG/MIN FOR 2 HRS...
     Route: 042
     Dates: start: 20230404, end: 20230404
  2. ELIQUIS [Concomitant]
     Active Substance: APIXABAN
     Indication: Atrial fibrillation
     Route: 048
  3. DAYVIGO [Concomitant]
     Active Substance: LEMBOREXANT
     Route: 048
  4. VONOPRAZAN FUMARATE [Concomitant]
     Active Substance: VONOPRAZAN FUMARATE
     Indication: Gastritis prophylaxis
     Route: 048
  5. MOSAPRIDE CITRATE DIHYDRATE [Concomitant]
     Active Substance: MOSAPRIDE CITRATE DIHYDRATE
     Route: 048
  6. LOXOPROFEN SODIUM [Concomitant]
     Active Substance: LOXOPROFEN SODIUM
     Route: 062
  7. BISACODYL [Concomitant]
     Active Substance: BISACODYL
     Dosage: 10.0MG UNKNOWN
     Route: 054

REACTIONS (2)
  - Putamen haemorrhage [Fatal]
  - Haemorrhagic cerebral infarction [Fatal]

NARRATIVE: CASE EVENT DATE: 20230401
